FAERS Safety Report 8796338 (Version 1)
Quarter: 2012Q4

REPORT INFORMATION
  Report Type: 
  Country: NZ (occurrence: NZ)
  Receive Date: 20120919
  Receipt Date: 20120919
  Transmission Date: 20130627
  Serious: Yes (Other)
  Sender: FDA-Public Use
  Company Number: NZ-PFIZER INC-2012227158

PATIENT
  Sex: Female

DRUGS (2)
  1. DEPO-PROVERA [Suspect]
  2. EPILIM [Concomitant]

REACTIONS (3)
  - Suicidal behaviour [Unknown]
  - Condition aggravated [Unknown]
  - Depression [Unknown]
